FAERS Safety Report 4522987-9 (Version None)
Quarter: 2004Q4

REPORT INFORMATION
  Report Type: 
  Country: None (occurrence: None)
  Receive Date: 20041208
  Receipt Date: 20041124
  Transmission Date: 20050328
  Serious: Yes (Death)
  Sender: FDA-Public Use
  Company Number: 04P-056-0279959-00

PATIENT
  Age: 36 Year
  Sex: Male

DRUGS (25)
  1. DEPAKOTE [Suspect]
     Indication: BIPOLAR DISORDER
     Dosage: 500 MG, ORAL
     Route: 048
     Dates: start: 20040401, end: 20041004
  2. DEPAKOTE [Suspect]
     Indication: BIPOLAR DISORDER
     Dosage: 500 MG, ORAL
     Route: 048
     Dates: start: 20041005, end: 20041012
  3. CLOZAPINE [Suspect]
     Indication: BIPOLAR DISORDER
     Dosage: 100 MG, ORAL
     Route: 048
     Dates: start: 20040616, end: 20041012
  4. CLOZAPINE [Suspect]
     Indication: PSYCHOTIC DISORDER
     Dosage: 100 MG, ORAL
     Route: 048
     Dates: start: 20040616, end: 20041012
  5. LOXAPINE SUCCINATE [Concomitant]
  6. AMITRIPTYLINE HYDROCHLORIDE [Concomitant]
  7. TRIHEXYPHENIDYL HCL [Concomitant]
  8. CLONAZEPAM [Concomitant]
  9. ZUCLOPENTHIXOL HYDROCHLORIDE [Concomitant]
  10. VALPROMIDE [Concomitant]
  11. LITHIUM [Concomitant]
  12. HYDROXYZINE [Concomitant]
  13. PAROXETINE [Concomitant]
  14. HALOPERIDOL [Concomitant]
  15. LEVOMEPROMAZINE [Concomitant]
  16. OLANZAPINE [Concomitant]
  17. ACEPROMAZINE [Concomitant]
  18. ACEPROMETHAZINE [Concomitant]
  19. OXAZEPAM [Concomitant]
  20. CARBAMAZEPINE [Concomitant]
  21. AMISULPRIDE [Concomitant]
  22. ............ [Concomitant]
  23. IMIPRAM TAB [Concomitant]
  24. CLORAZEPATE DIPOTASSIUM [Concomitant]
  25. DIAZEPAM [Concomitant]

REACTIONS (10)
  - ABDOMINAL DISTENSION [None]
  - BALANCE DISORDER [None]
  - CATATONIA [None]
  - DEPRESSION [None]
  - DYSPHAGIA [None]
  - GASTROINTESTINAL OBSTRUCTION [None]
  - OVERDOSE [None]
  - SEDATION [None]
  - SPEECH DISORDER [None]
  - VOMITING [None]
